FAERS Safety Report 18392643 (Version 1)
Quarter: 2020Q4

REPORT INFORMATION
  Report Type: Spontaneous
  Country: US (occurrence: US)
  Receive Date: 20201016
  Receipt Date: 20201016
  Transmission Date: 20210114
  Serious: Yes (Hospitalization)
  Sender: FDA-Public Use
  Company Number: None

PATIENT
  Sex: Male

DRUGS (8)
  1. ATORVASTATIN [Concomitant]
     Active Substance: ATORVASTATIN
  2. NORVASC [Concomitant]
     Active Substance: AMLODIPINE BESYLATE
  3. LANTHANUM [Concomitant]
     Active Substance: LANTHANUM
  4. SENSIPAR [Suspect]
     Active Substance: CINACALCET HYDROCHLORIDE
     Indication: HYPERPARATHYROIDISM SECONDARY
     Route: 048
     Dates: start: 20171005
  5. ANDRODERM [Concomitant]
     Active Substance: TESTOSTERONE
  6. FOSRENOL [Concomitant]
     Active Substance: LANTHANUM CARBONATE
  7. ELIQUIS [Concomitant]
     Active Substance: APIXABAN
  8. METOPROLOL TARTRATE. [Concomitant]
     Active Substance: METOPROLOL TARTRATE

REACTIONS (1)
  - Surgery [None]
